FAERS Safety Report 23280957 (Version 1)
Quarter: 2023Q4

REPORT INFORMATION
  Report Type: Spontaneous
  Country: US (occurrence: US)
  Receive Date: 20231211
  Receipt Date: 20231211
  Transmission Date: 20240109
  Serious: No
  Sender: FDA-Public Use
  Company Number: US-NOVEN PHARMACEUTICALS, INC.-2023-NOV-US000689

PATIENT
  Sex: Female

DRUGS (2)
  1. ESTRADIOL [Suspect]
     Active Substance: ESTRADIOL
     Indication: Osteoporosis
     Dosage: 0.025 MG, 1 PATCH A WEEK (HALF OF WHAT WAS PRESCRIBED)
     Route: 062
     Dates: start: 202303
  2. ESTRADIOL [Suspect]
     Active Substance: ESTRADIOL
     Indication: Off label use

REACTIONS (9)
  - Increased appetite [Unknown]
  - Irritable bowel syndrome [Unknown]
  - Back injury [Unknown]
  - Generalised oedema [Unknown]
  - Breast enlargement [Unknown]
  - Irritability [Unknown]
  - Treatment noncompliance [Unknown]
  - Intentional product misuse [Unknown]
  - Off label use [Not Recovered/Not Resolved]

NARRATIVE: CASE EVENT DATE: 20230101
